FAERS Safety Report 4875439-0 (Version None)
Quarter: 2005Q4

REPORT INFORMATION
  Report Type: 
  Country: None (occurrence: None)
  Receive Date: 20051209
  Receipt Date: 20050921
  Transmission Date: 20060501
  Serious: Yes (Hospitalization)
  Sender: FDA-Public Use
  Company Number: 430087K05USA

PATIENT
  Age: 32 Year
  Sex: Female

DRUGS (4)
  1. NOVANTRONE [Suspect]
     Dosage: 1 IN 3 MONTHS
  2. PAIN MEDICATION (ANALGESICS) [Concomitant]
  3. DURAGESIC PATCH (FENTANYL /00174601/) [Concomitant]
  4. AVONEX [Concomitant]

REACTIONS (2)
  - BRADYCARDIA [None]
  - MULTIPLE SCLEROSIS RELAPSE [None]
